FAERS Safety Report 5867582-4 (Version None)
Quarter: 2008Q3

REPORT INFORMATION
  Report Type: 
  Country: None (occurrence: None)
  Receive Date: 20080902
  Receipt Date: 20071101
  Transmission Date: 20090109
  Serious: No
  Sender: FDA-Public Use
  Company Number: US-ABBOTT-07P-163-0423091-00

PATIENT
  Sex: Female
  Weight: 77.18 kg

DRUGS (5)
  1. DEPAKOTE ER [Suspect]
     Indication: BIPOLAR DISORDER
     Route: 048
     Dates: start: 20070601
  2. QUETIAPINE [Concomitant]
     Indication: BIPOLAR DISORDER
     Route: 048
     Dates: start: 20070601
  3. VENLAFAXINE HCL [Concomitant]
     Indication: BIPOLAR DISORDER
     Route: 048
     Dates: start: 20000101
  4. LISINOPRIL [Concomitant]
     Indication: HYPERTENSION
     Route: 048
     Dates: start: 20050101
  5. NORTRIPTYLINE HCL [Concomitant]
     Indication: BIPOLAR DISORDER
     Route: 048
     Dates: start: 20070901

REACTIONS (2)
  - ALOPECIA [None]
  - TREMOR [None]
